FAERS Safety Report 16233471 (Version 14)
Quarter: 2020Q4

REPORT INFORMATION
  Report Type: Report from Study
  Country: US (occurrence: US)
  Receive Date: 20190424
  Receipt Date: 20201125
  Transmission Date: 20210113
  Serious: Yes (Hospitalization, Other)
  Sender: FDA-Public Use
  Company Number: PHEH2019US017505

PATIENT
  Sex: Female
  Weight: 74.38 kg

DRUGS (6)
  1. TREPROSTINIL. [Suspect]
     Active Substance: TREPROSTINIL
     Dosage: UNK (76 MG/KG/MIN, CONTINOUS (STRENGTH: 1MG/ML))
     Route: 042
  2. TREPROSTINIL. [Suspect]
     Active Substance: TREPROSTINIL
     Dosage: UNK (76 MG/KG/MIN, CONTINOUS (STRENGTH: 1MG/ML))
     Route: 042
     Dates: start: 20190410
  3. TREPROSTINIL. [Suspect]
     Active Substance: TREPROSTINIL
     Dosage: UNK (76 MG/KG/MIN, CONTINOUS (STRENGTH: 1MG/ML))
     Route: 042
  4. TREPROSTINIL. [Suspect]
     Active Substance: TREPROSTINIL
     Indication: PULMONARY ARTERIAL HYPERTENSION
     Dosage: UNK (76 MG/KG/MIN, CONTINOUS (STRENGTH: 1MG/ML))
     Route: 058
     Dates: start: 20190410
  5. TREPROSTINIL. [Suspect]
     Active Substance: TREPROSTINIL
     Dosage: UNK (76 MG/KG/MIN, CONTINOUS (STRENGTH: 1MG/ML))
     Route: 042
  6. EPOPROSTENOL. [Concomitant]
     Active Substance: EPOPROSTENOL
     Indication: PRODUCT USED FOR UNKNOWN INDICATION
     Dosage: UNK
     Route: 065

REACTIONS (15)
  - Impaired healing [Unknown]
  - Cellulitis [Unknown]
  - Oedema peripheral [Unknown]
  - Rash [Unknown]
  - Cardiac failure congestive [Unknown]
  - Breath sounds abnormal [Unknown]
  - Limb injury [Unknown]
  - Diarrhoea [Unknown]
  - Localised infection [Unknown]
  - Pain in extremity [Unknown]
  - Fluid retention [Unknown]
  - Pneumonia [Unknown]
  - Pulmonary hypertension [Unknown]
  - Weight decreased [Unknown]
  - Dyspnoea [Not Recovered/Not Resolved]
